FAERS Safety Report 4526444-5 (Version None)
Quarter: 2004Q4

REPORT INFORMATION
  Report Type: 
  Country: None (occurrence: None)
  Receive Date: 20041210
  Receipt Date: 20041126
  Transmission Date: 20050328
  Serious: Yes (Hospitalization)
  Sender: FDA-Public Use
  Company Number: FABR-10830

PATIENT
  Age: 52 Year
  Sex: Male
  Weight: 56 kg

DRUGS (21)
  1. FABRAZYME [Suspect]
     Indication: FABRY'S DISEASE
     Dosage: 70 MG Q2WKS IV
     Route: 042
     Dates: start: 20031015
  2. TARDYFERON [Concomitant]
  3. PREVISCAN [Concomitant]
  4. PREDNISOLONE [Concomitant]
  5. ACTONEL [Concomitant]
  6. CACIT [Concomitant]
  7. TRIATEC [Concomitant]
  8. VASTAREL (TRIMETAZIDINE) [Concomitant]
  9. ASPIRIN [Concomitant]
  10. ELISOR [Concomitant]
  11. NITRIDERM (TRINITRINE) [Concomitant]
  12. DIFFU K [Concomitant]
  13. OMEPRAZOLE [Concomitant]
  14. EFFERALGAN CODEINE (PARACETAMOL CODEINE) [Concomitant]
  15. ADANCOR [Concomitant]
  16. ULTRALEVURE [Concomitant]
  17. THIAMINE HCL [Concomitant]
  18. VITAMIN B6 [Concomitant]
  19. ZOPLICONE [Concomitant]
  20. ACETAMINOPHEN [Concomitant]
  21. POLARAMINE [Concomitant]

REACTIONS (7)
  - CHEST PAIN [None]
  - CHILLS [None]
  - FEELING ABNORMAL [None]
  - HOT FLUSH [None]
  - PAIN [None]
  - PAIN IN EXTREMITY [None]
  - TREMOR [None]
